FAERS Safety Report 9581294 (Version 8)
Quarter: 2014Q1

REPORT INFORMATION
  Report Type: Spontaneous
  Country: US (occurrence: US)
  Receive Date: 20131002
  Receipt Date: 20140324
  Transmission Date: 20141002
  Serious: No
  Sender: FDA-Public Use
  Company Number: US-PFIZER INC-2013278210

PATIENT
  Age: 69 Year
  Sex: Male
  Weight: 68 kg

DRUGS (9)
  1. SUTENT [Suspect]
     Dosage: 25 MG, CYCLIC
     Dates: start: 20130906
  2. SUTENT [Suspect]
     Dosage: 50 MG, CYCLIC
     Dates: start: 20131018
  3. SUTENT [Suspect]
     Dosage: 37.5 MG, UNK
     Dates: start: 20140121
  4. SUTENT [Suspect]
     Dosage: 37.5 MG, UNK
     Dates: start: 20140312
  5. CALCIUM [Concomitant]
     Dosage: UNK
  6. LISINOPRIL [Concomitant]
     Dosage: UNK
  7. HYDROCHLOROTHIAZIDE [Concomitant]
     Dosage: UNK
  8. BARACLUDE [Concomitant]
     Dosage: UNK
  9. LEVOTHYROXINE [Concomitant]
     Indication: THYROID FUNCTION TEST ABNORMAL
     Dosage: UNK

REACTIONS (8)
  - Dry skin [Unknown]
  - Skin atrophy [Unknown]
  - Platelet count decreased [Unknown]
  - White blood cell count decreased [Unknown]
  - Fatigue [Recovered/Resolved]
  - Dry mouth [Unknown]
  - Tooth disorder [Unknown]
  - Thyroid function test abnormal [Unknown]
